FAERS Safety Report 9050460 (Version 6)
Quarter: 2015Q1

REPORT INFORMATION
  Report Type: Report from Study
  Country: SK (occurrence: SK)
  Receive Date: 20130205
  Receipt Date: 20150108
  Transmission Date: 20150721
  Serious: Yes (Hospitalization, Other)
  Sender: FDA-Public Use
  Company Number: SK-ACTELION-A-CH2012-65363

PATIENT
  Age: 29 Year
  Sex: Female
  Weight: 36 kg

DRUGS (9)
  1. SETININ [Concomitant]
     Indication: PSYCHOTIC DISORDER
     Dosage: 100 MG, TID
     Route: 048
  2. GABAPENTIN. [Concomitant]
     Active Substance: GABAPENTIN
  3. TOPAMAX [Concomitant]
     Active Substance: TOPIRAMATE
     Indication: EPILEPSY
     Dosage: 50 MG, BID
     Route: 048
     Dates: start: 2011
  4. ZAVESCA [Suspect]
     Active Substance: MIGLUSTAT
     Indication: NIEMANN-PICK DISEASE
     Dosage: 200 MG, TID
     Route: 048
     Dates: start: 20080904
  5. ORFIRIL [Concomitant]
     Active Substance: VALPROIC ACID
     Indication: EPILEPSY
     Dosage: 650 MG, BID
     Route: 048
     Dates: start: 2007
  6. SERLIFT [Concomitant]
     Active Substance: SERTRALINE HYDROCHLORIDE
     Indication: DEPRESSION
     Dosage: 50 MG, QD
     Route: 048
     Dates: start: 2008
  7. CELASKON [Concomitant]
     Dosage: 250 MG, UNK
  8. RIVOTRIL [Concomitant]
     Active Substance: CLONAZEPAM
     Dosage: UNK
     Dates: start: 2009
  9. VITAMIN E [Concomitant]
     Active Substance: .ALPHA.-TOCOPHEROL
     Dosage: 400 MG, UNK

REACTIONS (10)
  - Weight decreased [Recovered/Resolved]
  - Pneumonia [Not Recovered/Not Resolved]
  - Treatment noncompliance [Unknown]
  - Motor dysfunction [Unknown]
  - Respiratory tract infection [Not Recovered/Not Resolved]
  - Condition aggravated [Recovering/Resolving]
  - Tremor [Unknown]
  - Disturbance in attention [Unknown]
  - Seizure [Unknown]
  - Neuropathy peripheral [Unknown]

NARRATIVE: CASE EVENT DATE: 20120329
